FAERS Safety Report 17475566 (Version 2)
Quarter: 2021Q3

REPORT INFORMATION
  Report Type: Spontaneous
  Country: US (occurrence: US)
  Receive Date: 20200228
  Receipt Date: 20210728
  Transmission Date: 20211014
  Serious: Yes (Other)
  Sender: FDA-Public Use
  Company Number: US-TEVA-2020-US-1191552

PATIENT
  Age: 78 Year
  Sex: Male
  Weight: 120.31 kg

DRUGS (12)
  1. VALSARTAN SOLCO [Suspect]
     Active Substance: VALSARTAN
     Indication: HYPERTENSION
     Dosage: DOSE: 80 MG
     Route: 065
     Dates: start: 20160121, end: 20180525
  2. ZOCOR [Concomitant]
     Active Substance: SIMVASTATIN
     Indication: HYPERCHOLESTEROLAEMIA
     Dosage: DOSE: 20 MG, ONCE A DAY FOR 90 DAYS
     Route: 048
     Dates: start: 20120123, end: 20190521
  3. ASPIRIN. [Concomitant]
     Active Substance: ASPIRIN
     Dosage: 81 MG, ONE A DAY TILL PRESENT AND BELIEVED ONE A DAY WAS GOOD TO TAKE
     Route: 048
     Dates: start: 2000
  4. ZOFRAN [Concomitant]
     Active Substance: ONDANSETRON HYDROCHLORIDE
     Indication: VOMITING
  5. DIOVAN [Concomitant]
     Active Substance: VALSARTAN
     Indication: HYPERTENSION
     Dosage: DOSE: 80 MG, 1 TABLET A DAY FOR 90 DAYS
     Route: 048
     Dates: start: 20120123, end: 20140424
  6. XALATAN [Concomitant]
     Active Substance: LATANOPROST
     Indication: GLAUCOMA
     Dosage: 0.005% OPHTHALMIC SOLUTION, INSTILL 1 DROP INTO BOTH EYES AT BEDTIME
     Route: 047
  7. MUL TIVITAL [Concomitant]
     Dosage: 1 TAB BY MOUTH ONCE DAILY
     Route: 048
  8. ZOFRAN [Concomitant]
     Active Substance: ONDANSETRON HYDROCHLORIDE
     Indication: NAUSEA
     Dosage: 1 TABLET BY MOUTH EVERY 6 HOURS AS NEEDED
     Route: 048
  9. VALSARTAN ACTAVIS [Suspect]
     Active Substance: VALSARTAN
     Indication: HYPERTENSION
     Dosage: DOSE: 80 MG
     Route: 065
     Dates: start: 20150203, end: 20150728
  10. VIAGRA [Concomitant]
     Active Substance: SILDENAFIL CITRATE
     Dosage: DOSE: 100 MG
     Route: 065
  11. COZAAR [Suspect]
     Active Substance: LOSARTAN POTASSIUM
     Indication: HYPERTENSION
     Dosage: DOSAGE DETAILS: 50 MG, ONCE DAILY
     Route: 048
     Dates: start: 20180802, end: 20190423
  12. PERCOCED [Concomitant]
     Indication: PAIN
     Dosage: 325?10 MG TABLET, EVERY 4 HOURS AS NEEDED FOR PAIN
     Route: 048

REACTIONS (2)
  - Gastrointestinal wall thickening [Unknown]
  - Adenocarcinoma of colon [Unknown]
